FAERS Safety Report 21844181 (Version 2)
Quarter: 2023Q1

REPORT INFORMATION
  Report Type: Spontaneous
  Country: US (occurrence: US)
  Receive Date: 20230110
  Receipt Date: 20230220
  Transmission Date: 20230418
  Serious: No
  Sender: FDA-Public Use
  Company Number: US-BIOVITRUM-2023US00388

PATIENT
  Age: 0 Year
  Sex: Female
  Weight: 6 kg

DRUGS (10)
  1. SYNAGIS [Suspect]
     Active Substance: PALIVIZUMAB
     Indication: Pulmonary oedema
     Dates: start: 20221203
  2. ASPIRIN [Concomitant]
     Active Substance: ASPIRIN
     Dosage: 81 MG CHEWABLE TABLET
  3. POLY-VI-SOL [VITAMINS NOS] [Concomitant]
     Dosage: 250-50/ML DROPS
  4. OMEPRAZOLE [Concomitant]
     Active Substance: OMEPRAZOLE
     Dosage: 10 MG CAPSULE DR
  5. GABAPENTIN [Concomitant]
     Active Substance: GABAPENTIN
     Dosage: 250 MG/ 5 ML SOLUTION
  6. LASIX [Concomitant]
     Active Substance: FUROSEMIDE
     Dosage: 20 MG TABLET
  7. LEVOTHYROXINE [Concomitant]
     Active Substance: LEVOTHYROXINE
     Dosage: 13 MCG CAPSULE
  8. OXYGEN [Concomitant]
     Active Substance: OXYGEN
  9. SYNAGIS [Suspect]
     Active Substance: PALIVIZUMAB
     Indication: Post procedural complication
  10. SILDENAFIL CITRATE [Concomitant]
     Active Substance: SILDENAFIL CITRATE

REACTIONS (5)
  - Weight gain poor [Recovering/Resolving]
  - Decreased appetite [Not Recovered/Not Resolved]
  - Vomiting [Unknown]
  - Illness [Unknown]
  - Product dose omission issue [Unknown]

NARRATIVE: CASE EVENT DATE: 20230126
